FAERS Safety Report 5400978-3 (Version None)
Quarter: 2007Q3

REPORT INFORMATION
  Report Type: 
  Country: None (occurrence: None)
  Receive Date: 20070730
  Receipt Date: 20070725
  Transmission Date: 20080115
  Serious: Yes (Hospitalization)
  Sender: FDA-Public Use
  Company Number: DE-MERCK-0707DEU00106

PATIENT
  Age: 84 Year
  Sex: Male

DRUGS (2)
  1. FOSAMAX [Suspect]
     Indication: OSTEOPOROSIS
     Route: 048
     Dates: start: 20000101, end: 20070723
  2. [THERAPY UNSPECIFIED] [Concomitant]
     Route: 065

REACTIONS (8)
  - DYSPHAGIA [None]
  - LUNG INFECTION [None]
  - NAUSEA [None]
  - OESOPHAGEAL DISCOMFORT [None]
  - PYREXIA [None]
  - RETCHING [None]
  - STOMATITIS [None]
  - WRONG TECHNIQUE IN DRUG USAGE PROCESS [None]
